FAERS Safety Report 10062124 (Version 1)
Quarter: 2014Q1

REPORT INFORMATION
  Report Type: Spontaneous
  Country: US (occurrence: None)
  Receive Date: 20140312
  Receipt Date: 20140312
  Transmission Date: 20141002
  Serious: Yes (Hospitalization, Other)
  Sender: FDA-Public Use
  Company Number: 1000043361

PATIENT
  Age: 64 Year
  Sex: Male

DRUGS (16)
  1. SAVELLA [Suspect]
     Indication: FIBROMYALGIA
     Route: 048
     Dates: start: 20130121, end: 20130122
  2. SAVELLA [Suspect]
     Indication: DEPRESSION
     Route: 048
     Dates: start: 20130121, end: 20130122
  3. SAVELLA [Suspect]
     Indication: FIBROMYALGIA
     Dosage: 100 MG (50 MG, 2 IN 1 D), ORAL
     Route: 048
     Dates: start: 20130128, end: 20130227
  4. SAVELLA [Suspect]
     Indication: DEPRESSION
     Dosage: 100 MG (50 MG, 2 IN 1 D), ORAL
     Route: 048
     Dates: start: 20130128, end: 20130227
  5. ALTACE (RAMIPRIL) (RAMIPRIL) [Concomitant]
  6. REGLAN (METOCLOPRAMIDE) (METOCLOPRAMIDE) [Concomitant]
  7. TRICOR (FENOFIBRATE) (FENOFIBRATE) [Concomitant]
  8. LEVOTHYROXINE (LEVOTHYROXINE SODIUM) (LEVOTHYROXINE SODIUM) [Concomitant]
  9. MELOXICAM (MELOXICAM) (MELOXICAM) [Concomitant]
  10. MS CONTIN (MORPHINE SULFATE) (MORPHINE SULFATE) [Concomitant]
  11. HYDROCHLOROTHIAZIDE (HYDROCHLOROTHIAZIDE) (HYDROCHLOROTHIAZIDE) [Concomitant]
  12. LANTUS (INSULIN GLARGINE) (INSULIN GLARGINE) [Concomitant]
  13. HUMALOG (INSULIN LISPRO) (INSULIN LISPRO) [Concomitant]
  14. ZETIA (EZETIMIBE) (EZETIMIBE) [Concomitant]
  15. WELCHOL (COLESEVELAM HYDROCHLORIDE) (COLESEVELAM HYDROCHLORIDE) [Concomitant]
  16. OXYGEN (OXYGEN) (OXYGEN) [Concomitant]

REACTIONS (7)
  - Loss of consciousness [None]
  - Delirium [None]
  - Dysarthria [None]
  - Memory impairment [None]
  - Confusional state [None]
  - Restlessness [None]
  - Agitation [None]
